FAERS Safety Report 13790278 (Version 3)
Quarter: 2017Q4

REPORT INFORMATION
  Report Type: Spontaneous
  Country: FR (occurrence: FR)
  Receive Date: 20170725
  Receipt Date: 20171109
  Transmission Date: 20180320
  Serious: Yes (Death)
  Sender: FDA-Public Use
  Company Number: FR-SA-2017SA135033

PATIENT
  Age: 34 Year
  Sex: Female

DRUGS (19)
  1. LEPONEX [Suspect]
     Active Substance: CLOZAPINE
     Indication: PSYCHOTIC DISORDER
     Route: 048
     Dates: start: 200806, end: 201112
  2. LEVOTHYROX [Concomitant]
     Active Substance: LEVOTHYROXINE
     Indication: HYPOTHYROIDISM
     Route: 048
     Dates: start: 20170130
  3. TERALITHE [Suspect]
     Active Substance: LITHIUM CARBONATE
     Indication: PSYCHOTIC DISORDER
     Route: 048
     Dates: start: 20170531
  4. KLEAN-PREP /IRE/ [Concomitant]
     Indication: CONSTIPATION
     Route: 048
     Dates: start: 20170216, end: 20170519
  5. VALIUM [Suspect]
     Active Substance: DIAZEPAM
     Indication: PSYCHOTIC DISORDER
     Route: 048
     Dates: start: 20170509
  6. VALIUM [Suspect]
     Active Substance: DIAZEPAM
     Indication: PSYCHOTIC DISORDER
     Route: 048
     Dates: start: 20170609
  7. SPASFON [Concomitant]
     Active Substance: PHLOROGLUCINOL\1,3,5-TRIMETHOXYBENZENE
     Indication: PAIN
     Route: 048
     Dates: start: 20170130
  8. LANSOYL [Concomitant]
     Active Substance: MINERAL OIL
     Indication: CONSTIPATION
     Dosage: ORAL GEL IN SINGLE-DOSE CONTAINER
     Route: 048
     Dates: start: 20170327
  9. LOVENOX [Suspect]
     Active Substance: ENOXAPARIN SODIUM
     Dosage: INJECTABLE SOLUTION IN PRE- FILLED SYRINGE
     Route: 058
     Dates: start: 20170504
  10. VALIUM [Suspect]
     Active Substance: DIAZEPAM
     Indication: PSYCHOTIC DISORDER
     Route: 048
     Dates: start: 20170616
  11. LAMICTAL [Suspect]
     Active Substance: LAMOTRIGINE
     Indication: EPILEPSY
     Dosage: DISPERSIBLE OR CHEWABLE TABLET
     Route: 048
     Dates: start: 20170321
  12. LEPONEX [Suspect]
     Active Substance: CLOZAPINE
     Indication: PSYCHOTIC DISORDER
     Dosage: DIVISIBLE TABLET
     Route: 048
     Dates: start: 20170509
  13. MOVICOL [Concomitant]
     Active Substance: POLYETHYLENE GLYCOL 3350\POTASSIUM CHLORIDE\SODIUM BICARBONATE\SODIUM CHLORIDE
     Indication: CONSTIPATION
     Route: 048
     Dates: start: 20170313
  14. TERALITHE [Suspect]
     Active Substance: LITHIUM CARBONATE
     Indication: PSYCHOTIC DISORDER
     Route: 048
     Dates: start: 201406, end: 20170321
  15. TERALITHE [Suspect]
     Active Substance: LITHIUM CARBONATE
     Indication: PSYCHOTIC DISORDER
     Route: 048
     Dates: start: 20170321, end: 20170511
  16. TERALITHE [Suspect]
     Active Substance: LITHIUM CARBONATE
     Indication: PSYCHOTIC DISORDER
     Route: 048
     Dates: start: 20170529, end: 20170531
  17. GLYCEROL\PARAFFIN [Concomitant]
     Active Substance: GLYCERIN\PARAFFIN
     Dosage: ROUTE: CUT
     Dates: start: 20170130
  18. ARTANE [Suspect]
     Active Substance: TRIHEXYPHENIDYL HYDROCHLORIDE
     Indication: EXTRAPYRAMIDAL DISORDER
     Route: 048
     Dates: start: 20170428, end: 20170610
  19. FUMAFER [Concomitant]
     Active Substance: FERROUS FUMARATE
     Indication: IRON DEFICIENCY
     Route: 048
     Dates: start: 20160625

REACTIONS (1)
  - Sudden death [Fatal]

NARRATIVE: CASE EVENT DATE: 20170622
